FAERS Safety Report 6831608-1 (Version None)
Quarter: 2010Q3

REPORT INFORMATION
  Report Type: 
  Country: None (occurrence: None)
  Receive Date: 20100712
  Receipt Date: 20070217
  Transmission Date: 20110219
  Serious: No
  Sender: FDA-Public Use
  Company Number: US-PFIZER INC-2007014878

PATIENT
  Sex: Female

DRUGS (4)
  1. CHANTIX [Suspect]
     Indication: SMOKING CESSATION THERAPY
     Dosage: 1 BID EVERYDAY
     Dates: start: 20070201
  2. HYDROCODONE BITARTRATE [Concomitant]
  3. METHADONE HCL [Concomitant]
  4. KLONOPIN [Concomitant]

REACTIONS (4)
  - DIZZINESS [None]
  - MALAISE [None]
  - NAUSEA [None]
  - SOMNOLENCE [None]
